FAERS Safety Report 9621171 (Version 2)
Quarter: 2013Q4

REPORT INFORMATION
  Report Type: Spontaneous
  Country: US (occurrence: US)
  Receive Date: 20131015
  Receipt Date: 20131023
  Transmission Date: 20140711
  Serious: Yes (Other)
  Sender: FDA-Public Use
  Company Number: US-TEVA-437734USA

PATIENT
  Age: 56 Year
  Sex: Male
  Weight: 117.01 kg

DRUGS (5)
  1. CETIRIZINE W/PSEUDOEPHEDRINE [Suspect]
     Indication: NASAL CONGESTION
     Dosage: 5MG/120MG
     Route: 048
     Dates: start: 20130923, end: 20130924
  2. HYDROCHLOROTHIAZIDE [Concomitant]
  3. RANITIDINE [Concomitant]
  4. PRAVASTATIN [Concomitant]
  5. AMLODIPINE BESYLATE [Concomitant]
     Dates: start: 2012

REACTIONS (3)
  - Blood pressure increased [Recovered/Resolved]
  - Vision blurred [Recovered/Resolved]
  - Headache [Recovered/Resolved]
